FAERS Safety Report 21812067 (Version 2)
Quarter: 2023Q1

REPORT INFORMATION
  Report Type: Report from Study
  Country: MX (occurrence: MX)
  Receive Date: 20230103
  Receipt Date: 20230114
  Transmission Date: 20230418
  Serious: Yes (Hospitalization, Other)
  Sender: FDA-Public Use
  Company Number: MX-002147023-NVSC2022MX302269

PATIENT
  Sex: Female
  Weight: 65 kg

DRUGS (2)
  1. EXFORGE HCT [Suspect]
     Active Substance: AMLODIPINE BESYLATE\HYDROCHLOROTHIAZIDE\VALSARTAN
     Indication: Hypertension
     Dosage: 1 DOSAGE FORM, QD (STARTED ABOUT 5 YEARS AGO)
     Route: 048
     Dates: end: 202206
  2. EXFORGE HCT [Suspect]
     Active Substance: AMLODIPINE BESYLATE\HYDROCHLOROTHIAZIDE\VALSARTAN
     Dosage: 0.5 DOSAGE FORM, QD (STARTED 5 MONTHS AGO)
     Route: 048
     Dates: start: 202206

REACTIONS (6)
  - Blood pressure decreased [Recovered/Resolved]
  - Phlebitis [Recovered/Resolved]
  - Anaemia [Recovered/Resolved]
  - COVID-19 [Recovered/Resolved with Sequelae]
  - Gait disturbance [Recovered/Resolved]
  - Wrong technique in product usage process [Unknown]

NARRATIVE: CASE EVENT DATE: 20220101
